FAERS Safety Report 9461978 (Version 5)
Quarter: 2013Q4

REPORT INFORMATION
  Report Type: Report from Study
  Country: DE (occurrence: DE)
  Receive Date: 20130816
  Receipt Date: 20131202
  Transmission Date: 20140711
  Serious: Yes (Hospitalization)
  Sender: FDA-Public Use
  Company Number: DE-BAXTER-2013BAX031790

PATIENT
  Age: 48 Year
  Sex: 0
  Weight: 70 kg

DRUGS (2)
  1. ADVATE 3000 I.E. [Suspect]
     Indication: FACTOR VIII DEFICIENCY
     Route: 042
     Dates: start: 20110812, end: 20120528
  2. ADVATE 3000 I.E. [Suspect]
     Indication: PROPHYLAXIS

REACTIONS (3)
  - Metastatic bronchial carcinoma [Recovering/Resolving]
  - Lung neoplasm malignant [Recovering/Resolving]
  - Respiratory failure [Recovered/Resolved]
